FAERS Safety Report 14496989 (Version 2)
Quarter: 2018Q1

REPORT INFORMATION
  Report Type: Spontaneous
  Country: US (occurrence: US)
  Receive Date: 20180207
  Receipt Date: 20180214
  Transmission Date: 20180509
  Serious: Yes (Other)
  Sender: FDA-Public Use
  Company Number: PHEH2018US004065

PATIENT
  Age: 45 Year
  Sex: Male

DRUGS (1)
  1. AFINITOR [Suspect]
     Active Substance: EVEROLIMUS
     Indication: PRODUCT USED FOR UNKNOWN INDICATION
     Dosage: UNK
     Route: 065
     Dates: start: 201306, end: 201312

REACTIONS (6)
  - Cardiac dysfunction [Unknown]
  - Cardiac output decreased [Unknown]
  - Cardiac valve disease [Unknown]
  - Gastrooesophageal reflux disease [Unknown]
  - Cardiac failure [Unknown]
  - Stomatitis [Unknown]

NARRATIVE: CASE EVENT DATE: 20180107
